FAERS Safety Report 8174812-5 (Version None)
Quarter: 2012Q1

REPORT INFORMATION
  Report Type: 
  Country: None (occurrence: None)
  Receive Date: 20120229
  Receipt Date: 20120218
  Transmission Date: 20120608
  Serious: Yes (Hospitalization, Other)
  Sender: FDA-Public Use
  Company Number: PHHY2012DE015220

PATIENT
  Sex: Female

DRUGS (13)
  1. ANGIOTENSIN CONVERTING ENZYME BLOCKERS [Concomitant]
  2. LEVOTHYROXINE SODIUM [Concomitant]
     Indication: THYROID DISORDER
     Dosage: 125 UG, QD
     Route: 048
     Dates: start: 20070302
  3. ASPIRIN [Concomitant]
     Dosage: 100 MG, QD
     Route: 048
     Dates: start: 20040602
  4. RASILEZ [Suspect]
     Indication: HYPERTENSION
     Dosage: 150 MG, QD
     Route: 048
     Dates: start: 20081113, end: 20110920
  5. CENTRALLY ACTING SYMPATHOMIMETICS [Concomitant]
  6. NEBIVOLOL [Concomitant]
     Indication: HYPERTENSION
     Dosage: 5 MG, QD
     Route: 048
     Dates: start: 20060415
  7. FUROSEMIDE [Concomitant]
     Dosage: 125 MG, QD
     Route: 048
     Dates: start: 20060620
  8. SIMVASTATIN [Concomitant]
     Dosage: 40 MG, QD
     Route: 048
     Dates: start: 20050420
  9. DIURETICS [Concomitant]
  10. METFORMIN HCL [Concomitant]
     Dosage: 500 MG, QD
     Route: 048
     Dates: start: 20060312
  11. RAMIPRIL [Concomitant]
     Indication: HYPERTENSION
     Dosage: 5 MG, QD
     Route: 048
     Dates: start: 20071124
  12. RAMIPRIL [Concomitant]
     Indication: HYPERTENSION
     Dosage: 30 MG, QD
     Route: 048
     Dates: start: 20071124
  13. AMLODIPINE [Concomitant]
     Dosage: 10 MG, QD
     Route: 048
     Dates: start: 20070512

REACTIONS (3)
  - BLOOD CREATININE INCREASED [None]
  - ACUTE MYOCARDIAL INFARCTION [None]
  - BLOOD SODIUM DECREASED [None]
